FAERS Safety Report 12826133 (Version 1)
Quarter: 2016Q4

REPORT INFORMATION
  Report Type: Spontaneous
  Country: US (occurrence: US)
  Receive Date: 20161006
  Receipt Date: 20161006
  Transmission Date: 20170207
  Serious: No
  Sender: FDA-Public Use
  Company Number: US-JAZZ-2016-US-012574

PATIENT
  Sex: Male

DRUGS (10)
  1. XYREM [Suspect]
     Active Substance: SODIUM OXYBATE
     Dosage: 4 G, BID
     Route: 048
     Dates: start: 201503
  2. HYDROCODONE POLISTIREX AND CHLORPHENIRAMINE P [Concomitant]
  3. NUVIGIL [Concomitant]
     Active Substance: ARMODAFINIL
  4. XYREM [Suspect]
     Active Substance: SODIUM OXYBATE
     Indication: NARCOLEPSY
     Dosage: 2.25 G, BID
     Route: 048
     Dates: start: 201312, end: 201312
  5. CLARITIN [Concomitant]
     Active Substance: LORATADINE
  6. AMOXICILLIN. [Concomitant]
     Active Substance: AMOXICILLIN
  7. RITALIN [Concomitant]
     Active Substance: METHYLPHENIDATE HYDROCHLORIDE
  8. XYREM [Suspect]
     Active Substance: SODIUM OXYBATE
     Indication: CATAPLEXY
     Dosage: DOSE ADJUSTMENTS
     Route: 048
     Dates: start: 201312, end: 201503
  9. VITAMIN D3 [Concomitant]
     Active Substance: CHOLECALCIFEROL
  10. FLOVENT [Concomitant]
     Active Substance: FLUTICASONE PROPIONATE

REACTIONS (2)
  - Therapeutic response unexpected [Unknown]
  - Pre-existing condition improved [Unknown]
